FAERS Safety Report 9355543 (Version 1)
Quarter: 2013Q2

REPORT INFORMATION
  Report Type: Spontaneous
  Country: JP (occurrence: JP)
  Receive Date: 20130619
  Receipt Date: 20130619
  Transmission Date: 20140414
  Serious: Yes (Other)
  Sender: FDA-Public Use
  Company Number: JP-PFIZER INC-2013182460

PATIENT
  Sex: Female

DRUGS (2)
  1. GABAPEN [Suspect]
     Route: 048
  2. WARFARIN [Concomitant]

REACTIONS (1)
  - International normalised ratio increased [Unknown]
